FAERS Safety Report 10922382 (Version 2)
Quarter: 2015Q3

REPORT INFORMATION
  Report Type: Spontaneous
  Country: FR (occurrence: FR)
  Receive Date: 20150317
  Receipt Date: 20150928
  Transmission Date: 20151125
  Serious: Yes (Hospitalization, Other)
  Sender: FDA-Public Use
  Company Number: FR-PFIZER INC-2015089908

PATIENT
  Age: 18 Year
  Sex: Female

DRUGS (9)
  1. LAROXYL [Suspect]
     Active Substance: AMITRIPTYLINE
     Dosage: 2 TO 25 DROPS DAILY IN THE EVENING
     Route: 048
     Dates: start: 20141209, end: 20150110
  2. LYRICA [Suspect]
     Active Substance: PREGABALIN
     Dosage: 50 MG, DAILY
     Route: 048
     Dates: start: 201412, end: 201412
  3. SOLUPRED [Concomitant]
     Active Substance: PREDNISOLONE
     Dosage: 60 MG, 1X/DAY
     Route: 048
     Dates: start: 20141209, end: 20141215
  4. LYRICA [Suspect]
     Active Substance: PREGABALIN
     Dosage: 75 MG, DAILY
     Route: 048
     Dates: start: 201412, end: 201412
  5. LYRICA [Suspect]
     Active Substance: PREGABALIN
     Dosage: 25 MG, DAILY
     Route: 048
     Dates: start: 201410, end: 201412
  6. LYRICA [Suspect]
     Active Substance: PREGABALIN
     Dosage: 100 MG, DAILY
     Route: 048
     Dates: start: 201412, end: 20150110
  7. MONOCRIXO LP [Suspect]
     Active Substance: TRAMADOL HYDROCHLORIDE
     Dosage: 400 MG, DAILY
     Route: 048
     Dates: start: 20141213, end: 20150110
  8. VERSATIS [Suspect]
     Active Substance: LIDOCAINE
     Dosage: UNK
     Route: 061
     Dates: start: 20141209, end: 20150110
  9. MONOCRIXO LP [Suspect]
     Active Substance: TRAMADOL HYDROCHLORIDE
     Dosage: 200 MG, 1X/DAY
     Route: 048
     Dates: start: 20141209, end: 20141212

REACTIONS (7)
  - Suicidal ideation [Recovered/Resolved]
  - Mood altered [Unknown]
  - Hallucination [Recovered/Resolved]
  - Road traffic accident [Unknown]
  - Somnambulism [Recovered/Resolved]
  - Anxiety [Unknown]
  - Aggression [Recovered/Resolved]

NARRATIVE: CASE EVENT DATE: 20141219
